FAERS Safety Report 21250181 (Version 1)
Quarter: 2022Q3

REPORT INFORMATION
  Report Type: Spontaneous
  Country: CN (occurrence: CN)
  Receive Date: 20220824
  Receipt Date: 20220824
  Transmission Date: 20221027
  Serious: Yes (Hospitalization)
  Sender: FDA-Public Use
  Company Number: CN-BEIGENE USA INC-BGN-2022-008442

PATIENT

DRUGS (3)
  1. BRUKINSA [Suspect]
     Active Substance: ZANUBRUTINIB
     Indication: Diffuse large B-cell lymphoma
     Dosage: 160 MILLIGRAM, BID
     Route: 048
     Dates: start: 20220217, end: 20220227
  2. RITUXIMAB [Suspect]
     Active Substance: RITUXIMAB
     Indication: Diffuse large B-cell lymphoma
     Dosage: 662 MILLIGRAM
     Route: 041
     Dates: start: 20220217, end: 20220217
  3. LENALIDOMIDE [Suspect]
     Active Substance: LENALIDOMIDE
     Indication: Diffuse large B-cell lymphoma
     Dosage: 25 MILLIGRAM, QD
     Route: 048
     Dates: start: 20220217, end: 20220227

REACTIONS (2)
  - Tumour lysis syndrome [Recovering/Resolving]
  - Off label use [Unknown]

NARRATIVE: CASE EVENT DATE: 20220217
